FAERS Safety Report 8946284 (Version 1)
Quarter: 2012Q4

REPORT INFORMATION
  Report Type: 
  Country: US (occurrence: US)
  Receive Date: 20121204
  Receipt Date: 20121204
  Transmission Date: 20130627
  Serious: No
  Sender: FDA-Public Use
  Company Number: US-AMGEN-USASP2012063534

PATIENT
  Age: 74 Year
  Sex: Female
  Weight: 71.2 kg

DRUGS (12)
  1. ENBREL [Suspect]
     Indication: RHEUMATOID ARTHRITIS
     Dosage: 50 mg, qwk
     Route: 058
     Dates: start: 20120918
  2. MULTIVITAMIN                       /07504101/ [Concomitant]
     Dosage: 1 tablet daily
     Route: 048
  3. CALCIUM [Concomitant]
     Dosage: 1 tablet daily
  4. ASPIRIN [Concomitant]
     Dosage: 81 mg, qd
     Route: 048
  5. FOLIC ACID [Concomitant]
     Dosage: 1 mg, qd
     Route: 048
  6. BACLOFEN [Concomitant]
     Dosage: 1 tablet 3 times daily
     Route: 048
  7. VITAMIN D                          /00318501/ [Concomitant]
     Dosage: 1 capsule daily
  8. FERROUS SULFATE [Concomitant]
     Dosage: 325 mg, 1 tablet twice daily
     Route: 048
  9. AMLODIPINE BESYLATE [Concomitant]
     Indication: BLOOD PRESSURE
     Dosage: 5 mg, 1 tablet daily
     Route: 048
  10. ATENOLOL [Concomitant]
     Dosage: 50 mg, bid
     Route: 048
  11. NAPROXEN [Concomitant]
     Dosage: 500 mg, qd
     Route: 048
  12. METHOTREXATE [Concomitant]
     Dosage: 2.5 mg, 8 tablets per week
     Route: 048

REACTIONS (8)
  - Post procedural complication [Unknown]
  - Musculoskeletal stiffness [Unknown]
  - Joint swelling [Unknown]
  - Tendonitis [Unknown]
  - Tenosynovitis [Unknown]
  - Injection site reaction [Not Recovered/Not Resolved]
  - Injection site pain [Not Recovered/Not Resolved]
  - Injection site erythema [Not Recovered/Not Resolved]
